FAERS Safety Report 9789955 (Version 1)
Quarter: 2013Q4

REPORT INFORMATION
  Report Type: Spontaneous
  Country: AU (occurrence: None)
  Receive Date: 20131227
  Receipt Date: 20131227
  Transmission Date: 20140711
  Serious: Yes (Other)
  Sender: FDA-Public Use
  Company Number: 2013000377

PATIENT
  Age: 72 Year
  Sex: Female

DRUGS (7)
  1. ACEON (PERINDOPRIL ERBUMINE) TABLET [Suspect]
     Indication: PRODUCT USED FOR UNKNOWN INDICATION
  2. GLICLAZIDE (GLICLAZIDE) [Suspect]
     Indication: PRODUCT USED FOR UNKNOWN INDICATION
  3. METFORMIN HYDROCHLORIDE (METFORMIN HYDROCHLORIDE) [Suspect]
     Indication: PRODUCT USED FOR UNKNOWN INDICATION
  4. FOSAMAX (ALENDRONATE SODIUM) [Concomitant]
  5. JEZIL (GEMFIBROZIL) [Concomitant]
  6. OROXINE (LEVOTHYROXINE SODIUM) [Concomitant]
  7. PLAVIX (CLOPIDOGREL SULFATE) [Concomitant]

REACTIONS (2)
  - Lactic acidosis [None]
  - Renal failure acute [None]
